FAERS Safety Report 7407309-8 (Version None)
Quarter: 2011Q2

REPORT INFORMATION
  Report Type: 
  Country: None (occurrence: None)
  Receive Date: 20110411
  Receipt Date: 20110330
  Transmission Date: 20111010
  Serious: Yes (Other)
  Sender: FDA-Public Use
  Company Number: PHHY2011MX26738

PATIENT
  Sex: Male

DRUGS (1)
  1. EXFORGE [Suspect]
     Indication: HYPERTENSION
     Dosage: 2 DF, 2 TABLET (160/10 MG) DAILY ORAL
     Route: 048
     Dates: start: 20100101, end: 20110301

REACTIONS (5)
  - INFLAMMATION [None]
  - RENAL FAILURE [None]
  - DIABETIC NEUROPATHY [None]
  - VIITH NERVE PARALYSIS [None]
  - FLUID RETENTION [None]
